FAERS Safety Report 16762256 (Version 2)
Quarter: 2019Q3

REPORT INFORMATION
  Report Type: Report from Study
  Country: AU (occurrence: AU)
  Receive Date: 20190831
  Receipt Date: 20190925
  Transmission Date: 20191005
  Serious: Yes (Hospitalization, Other)
  Sender: FDA-Public Use
  Company Number: AU-BRISTOL-MYERS SQUIBB COMPANY-BMS-2019-061139

PATIENT
  Age: 68 Year
  Sex: Male

DRUGS (3)
  1. THYROXINE [Concomitant]
     Active Substance: LEVOTHYROXINE
     Indication: PRODUCT USED FOR UNKNOWN INDICATION
     Dosage: UNK
     Route: 065
  2. NIVOLUMAB [Suspect]
     Active Substance: NIVOLUMAB
     Indication: MALIGNANT MELANOMA
     Dosage: 480 MILLIGRAM, Q4WK
     Route: 065
  3. PREDNISOLONE. [Concomitant]
     Active Substance: PREDNISOLONE
     Indication: PRODUCT USED FOR UNKNOWN INDICATION
     Dosage: UNK
     Route: 065

REACTIONS (12)
  - Malaise [Recovered/Resolved]
  - Balance disorder [Recovered/Resolved]
  - Pyrexia [Recovered/Resolved]
  - Lethargy [Recovered/Resolved]
  - Hypophysitis [Unknown]
  - Fatigue [Recovered/Resolved]
  - Inflammatory marker increased [Unknown]
  - Liver abscess [Unknown]
  - Hypothyroidism [Unknown]
  - Decreased appetite [Recovered/Resolved]
  - Hair colour changes [Recovered/Resolved]
  - Infection [Recovering/Resolving]

NARRATIVE: CASE EVENT DATE: 20190802
